FAERS Safety Report 25014434 (Version 1)
Quarter: 2025Q1

REPORT INFORMATION
  Report Type: Spontaneous
  Country: FR (occurrence: FR)
  Receive Date: 20250226
  Receipt Date: 20250226
  Transmission Date: 20250409
  Serious: Yes (Other)
  Sender: BRISTOL-MYERS SQUIBB COMPANY
  Company Number: None

PATIENT
  Age: 60 Year
  Sex: Female

DRUGS (1)
  1. KRAZATI [Suspect]
     Active Substance: ADAGRASIB
     Indication: Bronchial carcinoma
     Dosage: 600 MG X2/DAY
     Route: 048
     Dates: start: 20240801

REACTIONS (1)
  - Erythema nodosum [Recovering/Resolving]

NARRATIVE: CASE EVENT DATE: 20240815
